FAERS Safety Report 9850340 (Version 2)
Quarter: 2014Q1

REPORT INFORMATION
  Report Type: Spontaneous
  Country: US (occurrence: US)
  Receive Date: 20140128
  Receipt Date: 20140129
  Transmission Date: 20141002
  Serious: Yes (Hospitalization, Other)
  Sender: FDA-Public Use
  Company Number: US-BAXTER-2014BAX003299

PATIENT
  Age: 75 Year
  Sex: Male

DRUGS (1)
  1. 0.9% SODIUM CHLORIDE INJECTION [Suspect]
     Indication: RENAL FAILURE CHRONIC
     Dates: start: 20140106

REACTIONS (4)
  - Loss of consciousness [Unknown]
  - Hypotension [Recovering/Resolving]
  - Syncope [Recovering/Resolving]
  - Thrombosis [Recovering/Resolving]
